FAERS Safety Report 25034429 (Version 1)
Quarter: 2025Q1

REPORT INFORMATION
  Report Type: Spontaneous
  Country: US (occurrence: US)
  Receive Date: 20250304
  Receipt Date: 20250304
  Transmission Date: 20250409
  Serious: Yes (Other)
  Sender: ALEMBIC
  Company Number: US-ALEMBIC PHARMACUETICALS LIMITED-2025SCAL000137

PATIENT

DRUGS (1)
  1. DOCETAXEL [Suspect]
     Active Substance: DOCETAXEL
     Indication: Prostate cancer metastatic
     Route: 042

REACTIONS (9)
  - Retinal artery occlusion [Unknown]
  - Pseudopapilloedema [Unknown]
  - Optic disc haemorrhage [Unknown]
  - Macular oedema [Unknown]
  - Retinal oedema [Unknown]
  - Blindness [Unknown]
  - Visual acuity reduced [Recovering/Resolving]
  - Pupillary reflex impaired [Unknown]
  - Optic ischaemic neuropathy [Unknown]
